FAERS Safety Report 7395678-7 (Version None)
Quarter: 2011Q2

REPORT INFORMATION
  Report Type: 
  Country: None (occurrence: None)
  Receive Date: 20110405
  Receipt Date: 20110329
  Transmission Date: 20111010
  Serious: Yes (Other)
  Sender: FDA-Public Use
  Company Number: US-ABBOTT-11P-163-0715560-00

PATIENT
  Sex: Female
  Weight: 51.756 kg

DRUGS (7)
  1. LUPRON DEPOT [Suspect]
     Dates: start: 20101001
  2. TOPAMAX [Concomitant]
     Indication: MIGRAINE
  3. NORTHEPRIN [Concomitant]
     Indication: PRODUCT USED FOR UNKNOWN INDICATION
  4. LUPRON DEPOT [Suspect]
     Indication: ENDOMETRIOSIS
     Route: 030
     Dates: start: 20060101, end: 20090101
  5. TRAZODONE HCL [Concomitant]
     Indication: INSOMNIA
  6. MAXALT [Concomitant]
     Indication: MIGRAINE
  7. PRILOSEC [Concomitant]
     Indication: GASTROOESOPHAGEAL REFLUX DISEASE

REACTIONS (4)
  - NAUSEA [None]
  - FATIGUE [None]
  - MIGRAINE [None]
  - BONE DENSITY ABNORMAL [None]
